FAERS Safety Report 10193664 (Version 1)
Quarter: 2014Q2

REPORT INFORMATION
  Report Type: Spontaneous
  Country: US (occurrence: US)
  Receive Date: 20140524
  Receipt Date: 20140524
  Transmission Date: 20141212
  Serious: No
  Sender: FDA-Public Use
  Company Number: US-SA-2013SA136121

PATIENT
  Sex: Male

DRUGS (5)
  1. LANTUS SOLOSTAR [Suspect]
     Indication: TYPE 2 DIABETES MELLITUS
     Route: 051
  2. SOLOSTAR [Concomitant]
  3. NOVOLOG [Suspect]
     Route: 065
  4. INSULIN [Concomitant]
     Route: 065
  5. ORAL ANTIDIABETICS [Concomitant]

REACTIONS (1)
  - Glycosylated haemoglobin increased [Unknown]
